APPROVED DRUG PRODUCT: BETA-VAL
Active Ingredient: BETAMETHASONE VALERATE
Strength: EQ 0.1% BASE
Dosage Form/Route: CREAM;TOPICAL
Application: N018642 | Product #001 | TE Code: AB
Applicant: COSETTE PHARMACEUTICALS INC
Approved: Mar 24, 1983 | RLD: No | RS: No | Type: RX